FAERS Safety Report 18975380 (Version 3)
Quarter: 2021Q2

REPORT INFORMATION
  Report Type: Report from Study
  Country: CO (occurrence: CO)
  Receive Date: 20210305
  Receipt Date: 20210618
  Transmission Date: 20210717
  Serious: Yes (Death, Hospitalization, Other)
  Sender: FDA-Public Use
  Company Number: NVSC2021CO050139

PATIENT
  Age: 50 Year
  Sex: Female

DRUGS (1)
  1. KISQALI [Suspect]
     Active Substance: RIBOCICLIB
     Indication: BREAST CANCER METASTATIC
     Dosage: 600 MG, QD
     Route: 048

REACTIONS (11)
  - Nausea [Unknown]
  - Death [Fatal]
  - Yellow skin [Unknown]
  - Anxiety [Unknown]
  - Gastritis [Unknown]
  - Pain [Unknown]
  - Eye disorder [Unknown]
  - Thrombosis [Unknown]
  - Insomnia [Unknown]
  - Gastrointestinal infection [Unknown]
  - Vomiting [Unknown]

NARRATIVE: CASE EVENT DATE: 20210526
